FAERS Safety Report 4867493-7 (Version None)
Quarter: 2005Q4

REPORT INFORMATION
  Report Type: 
  Country: None (occurrence: None)
  Receive Date: 20051227
  Receipt Date: 20051227
  Transmission Date: 20060501
  Serious: Yes (Other)
  Sender: FDA-Public Use
  Company Number: None

PATIENT
  Age: 58 Year
  Sex: Male
  Weight: 95.5 kg

DRUGS (1)
  1. BIVALIRUDIN [Suspect]
     Indication: CATHETERISATION CARDIAC
     Dosage: 71MG BOLUS   X1   IV BOLUS;  166MG/HR   X30 MIN   IV DRIP
     Route: 040
     Dates: start: 20050103, end: 20050103

REACTIONS (1)
  - CORONARY ARTERY THROMBOSIS [None]
